FAERS Safety Report 19040656 (Version 1)
Quarter: 2021Q1

REPORT INFORMATION
  Report Type: Spontaneous
  Country: US (occurrence: US)
  Receive Date: 20210323
  Receipt Date: 20210323
  Transmission Date: 20210420
  Serious: No
  Sender: FDA-Public Use
  Company Number: US-AMGEN-USASP2021042454

PATIENT
  Age: 58 Year
  Sex: Female

DRUGS (10)
  1. USTEKINUMAB [Concomitant]
     Active Substance: USTEKINUMAB
     Indication: GRANULOMATOUS DERMATITIS
     Dosage: UNK
  2. OFLOXACIN. [Concomitant]
     Active Substance: OFLOXACIN
     Indication: GRANULOMA ANNULARE
     Dosage: UNK
  3. TILDRAKIZUMAB [Concomitant]
     Active Substance: TILDRAKIZUMAB
     Dosage: 100 MILLIGRAM (0 TO 4 WEEKS)
     Route: 058
  4. HYDROXYCHLOROQUINE [Concomitant]
     Active Substance: HYDROXYCHLOROQUINE
     Indication: GRANULOMA ANNULARE
     Dosage: UNK
  5. ADALIMUMAB [Concomitant]
     Active Substance: ADALIMUMAB
     Indication: GRANULOMA ANNULARE
     Dosage: UNK
  6. TILDRAKIZUMAB [Concomitant]
     Active Substance: TILDRAKIZUMAB
     Dosage: 100 MILLIGRAM (EVERY 12 WEEKS)
     Route: 058
  7. APREMILAST [Suspect]
     Active Substance: APREMILAST
     Indication: GRANULOMA ANNULARE
     Dosage: UNK
     Route: 065
  8. RIFAMPIN. [Concomitant]
     Active Substance: RIFAMPIN
     Indication: GRANULOMA ANNULARE
     Dosage: UNK
  9. METHOTREXATE. [Concomitant]
     Active Substance: METHOTREXATE
     Indication: GRANULOMA ANNULARE
     Dosage: UNK
  10. MINOCYCLINE [Concomitant]
     Active Substance: MINOCYCLINE HYDROCHLORIDE
     Indication: GRANULOMA ANNULARE
     Dosage: UNK

REACTIONS (2)
  - Off label use [Unknown]
  - Drug ineffective for unapproved indication [Unknown]
